FAERS Safety Report 6881812-1 (Version None)
Quarter: 2010Q3

REPORT INFORMATION
  Report Type: 
  Country: None (occurrence: None)
  Receive Date: 20100728
  Receipt Date: 20100728
  Transmission Date: 20110219
  Serious: Yes (Other)
  Sender: FDA-Public Use
  Company Number: None

PATIENT
  Sex: Female
  Weight: 73.9363 kg

DRUGS (4)
  1. CLINDAMYCIN AND BENZOYL PEROXIDE [Suspect]
     Indication: ACNE
     Dosage: COVER AFFECTED AREA - FACE DAILY - P.M. TOPICAL
     Route: 061
     Dates: start: 20100721
  2. CLINDAMYCIN AND BENZOYL PEROXIDE [Suspect]
     Indication: ACNE
     Dosage: COVER AFFECTED AREA - FACE DAILY - P.M. TOPICAL
     Route: 061
     Dates: start: 20100723
  3. CLINDAMYCIN AND BENZOYL PEROXIDE [Suspect]
     Indication: ACNE
     Dosage: COVER AFFECTED AREA - FACE DAILY - P.M. TOPICAL
     Route: 061
     Dates: start: 20100724
  4. CLINDAMYCIN AND BENZOYL PEROXIDE [Suspect]
     Indication: ACNE
     Dosage: COVER AFFECTED AREA - FACE DAILY - P.M. TOPICAL
     Route: 061
     Dates: start: 20100725

REACTIONS (3)
  - HEADACHE [None]
  - NAUSEA [None]
  - RETCHING [None]
